FAERS Safety Report 25778144 (Version 1)
Quarter: 2025Q3

REPORT INFORMATION
  Report Type: Report from Study
  Country: JP (occurrence: JP)
  Receive Date: 20250909
  Receipt Date: 20250909
  Transmission Date: 20251021
  Serious: Yes (Hospitalization)
  Sender: GILEAD
  Company Number: JP-GILEAD-2025-0720852

PATIENT
  Sex: Male

DRUGS (4)
  1. BICTEGRAVIR\EMTRICITABINE\TENOFOVIR ALAFENAMIDE [Suspect]
     Active Substance: BICTEGRAVIR\EMTRICITABINE\TENOFOVIR ALAFENAMIDE
     Indication: HIV infection
     Dosage: 1 DOSAGE FORM, QD
     Route: 048
     Dates: start: 20220419
  2. AMITIZA [Concomitant]
     Active Substance: LUBIPROSTONE
     Indication: Prophylaxis
     Dates: start: 20230419
  3. ESZOPICLONE [Concomitant]
     Active Substance: ESZOPICLONE
     Indication: Prophylaxis
     Dates: start: 20230419
  4. OLMESARTAN MEDOXOMIL [Concomitant]
     Active Substance: OLMESARTAN MEDOXOMIL
     Dates: start: 20230419

REACTIONS (2)
  - Neoplasm malignant [Unknown]
  - Iron deficiency anaemia [Not Recovered/Not Resolved]
